FAERS Safety Report 16167245 (Version 3)
Quarter: 2019Q2

REPORT INFORMATION
  Report Type: Report from Study
  Country: US (occurrence: US)
  Receive Date: 20190408
  Receipt Date: 20190513
  Transmission Date: 20190711
  Serious: Yes (Hospitalization, Other)
  Sender: FDA-Public Use
  Company Number: US-GILEAD-2019-0391463

PATIENT
  Age: 74 Year
  Sex: Female

DRUGS (3)
  1. OXYGEN. [Concomitant]
     Active Substance: OXYGEN
  2. TYVASO [Concomitant]
     Active Substance: TREPROSTINIL
  3. AMBRISENTAN [Suspect]
     Active Substance: AMBRISENTAN
     Indication: PULMONARY HYPERTENSION
     Dosage: 10 MG, QD
     Route: 048
     Dates: start: 20180904

REACTIONS (18)
  - Dysphonia [Not Recovered/Not Resolved]
  - Dehydration [Unknown]
  - Platelet count decreased [Unknown]
  - Pulmonary hypertension [Unknown]
  - Presyncope [Unknown]
  - Nasal discomfort [Not Recovered/Not Resolved]
  - Cardiac failure [Unknown]
  - Hypotension [Unknown]
  - Anaemia [Unknown]
  - Epistaxis [Unknown]
  - Haemorrhage [Unknown]
  - Nephrolithiasis [Recovered/Resolved]
  - Cough [Unknown]
  - Throat irritation [Unknown]
  - Dyspnoea [Not Recovered/Not Resolved]
  - Malaise [Not Recovered/Not Resolved]
  - Oropharyngeal pain [Unknown]
  - Rhinorrhoea [Unknown]

NARRATIVE: CASE EVENT DATE: 20190306
